FAERS Safety Report 4966021-5 (Version None)
Quarter: 2006Q2

REPORT INFORMATION
  Report Type: 
  Country: None (occurrence: None)
  Receive Date: 20060407
  Receipt Date: 20060322
  Transmission Date: 20061013
  Serious: Yes (Other)
  Sender: FDA-Public Use
  Company Number: FR-GLAXOSMITHKLINE-B0417022A

PATIENT
  Age: 82 Year
  Sex: Female

DRUGS (1)
  1. ZELITREX [Suspect]
     Dosage: 500MG PER DAY
     Route: 048
     Dates: start: 20060301

REACTIONS (3)
  - CREATININE RENAL CLEARANCE DECREASED [None]
  - HALLUCINATION [None]
  - NIGHTMARE [None]
